FAERS Safety Report 5747256-0 (Version None)
Quarter: 2008Q2

REPORT INFORMATION
  Report Type: 
  Country: None (occurrence: None)
  Receive Date: 20080520
  Receipt Date: 20080509
  Transmission Date: 20081010
  Serious: Yes (Hospitalization)
  Sender: FDA-Public Use
  Company Number: 015#1#2008-00025

PATIENT
  Sex: Female

DRUGS (1)
  1. NEUPRO [Suspect]

REACTIONS (1)
  - PANCREATITIS [None]
